FAERS Safety Report 5270269-2 (Version None)
Quarter: 2007Q1

REPORT INFORMATION
  Report Type: 
  Country: None (occurrence: None)
  Receive Date: 20070320
  Receipt Date: 20070312
  Transmission Date: 20070707
  Serious: Yes (Other)
  Sender: FDA-Public Use
  Company Number: US-ELI_LILLY_AND_COMPANY-US200701001233

PATIENT
  Age: 78 Year
  Sex: Male

DRUGS (3)
  1. CIALIS [Suspect]
     Indication: ERECTILE DYSFUNCTION
     Dosage: 20 MG, AS NEEDED
     Route: 048
  2. CIALIS [Suspect]
     Dosage: 40 MG, UNK
  3. FLOMAX [Concomitant]
     Dosage: UNK, DAILY (1/D)

REACTIONS (6)
  - ARTHROPATHY [None]
  - HEADACHE [None]
  - INTENTIONAL OVERDOSE [None]
  - STENT PLACEMENT [None]
  - THERAPEUTIC RESPONSE DECREASED [None]
  - VISUAL ACUITY REDUCED [None]
